FAERS Safety Report 7328003-8 (Version None)
Quarter: 2011Q1

REPORT INFORMATION
  Report Type: 
  Country: None (occurrence: None)
  Receive Date: 20110303
  Receipt Date: 20110222
  Transmission Date: 20110831
  Serious: Yes (Other)
  Sender: FDA-Public Use
  Company Number: CA-JNJFOC-20100703102

PATIENT
  Sex: Female
  Weight: 59 kg

DRUGS (5)
  1. REMICADE [Suspect]
     Dosage: 4TH INFUSION
     Route: 042
  2. REMICADE [Suspect]
     Dosage: 3RD INFUSION
     Route: 042
  3. REMICADE [Suspect]
     Indication: COLITIS ULCERATIVE
     Dosage: 1ST INFUSION
     Route: 042
  4. REMICADE [Suspect]
     Dosage: 2ND INFUSION
     Route: 042
  5. PREDNISONE [Concomitant]

REACTIONS (10)
  - JOINT STIFFNESS [None]
  - MUSCULOSKELETAL STIFFNESS [None]
  - MYALGIA [None]
  - DYSPNOEA [None]
  - ARTHRITIS [None]
  - ALOPECIA [None]
  - PAIN [None]
  - ONYCHOCLASIS [None]
  - ARTHRALGIA [None]
  - RASH [None]
